FAERS Safety Report 18387104 (Version 2)
Quarter: 2021Q2

REPORT INFORMATION
  Report Type: Report from Study
  Country: BE (occurrence: BE)
  Receive Date: 20201015
  Receipt Date: 20210419
  Transmission Date: 20210717
  Serious: Yes (Hospitalization)
  Sender: FDA-Public Use
  Company Number: BE-PFIZER INC-2020294540

PATIENT
  Age: 62 Year
  Sex: Male
  Weight: 70 kg

DRUGS (10)
  1. METHOTREXATE SODIUM. [Suspect]
     Active Substance: METHOTREXATE SODIUM
     Indication: BLADDER TRANSITIONAL CELL CARCINOMA
     Dosage: UNK UNK, CYCLIC (ONCE EVERY 2 WEEKS)
     Route: 042
     Dates: start: 20200408
  2. CISPLATIN. [Suspect]
     Active Substance: CISPLATIN
     Dosage: 90 MG
     Route: 042
     Dates: start: 20200521, end: 20200521
  3. VINBLASTINE [Suspect]
     Active Substance: VINBLASTINE
     Indication: BLADDER TRANSITIONAL CELL CARCINOMA
     Dosage: UNK UNK, CYCLIC (ONCE EVERY 2 WEEKS)
     Route: 042
     Dates: start: 20200409
  4. DOXORUBICIN HCL [Suspect]
     Active Substance: DOXORUBICIN HYDROCHLORIDE
     Dosage: 54 MG, CYCLIC (ONCE EVERY 2 WEEKS)
     Route: 042
     Dates: start: 20200521, end: 20200521
  5. CISPLATIN. [Suspect]
     Active Substance: CISPLATIN
     Indication: BLADDER TRANSITIONAL CELL CARCINOMA
     Dosage: UNK
     Route: 042
     Dates: start: 20200409
  6. VINBLASTINE [Suspect]
     Active Substance: VINBLASTINE
     Dosage: 5.4 MG, CYCLIC (ONCE EVERY 2 WEEKS)
     Route: 042
     Dates: start: 20200521, end: 20200521
  7. AVELUMAB [Suspect]
     Active Substance: AVELUMAB
     Indication: BLADDER TRANSITIONAL CELL CARCINOMA
     Dosage: UNK UNK, CYCLIC (ONCE EVERY 2 WEEKS)
     Route: 042
     Dates: start: 20200409
  8. AVELUMAB [Suspect]
     Active Substance: AVELUMAB
     Dosage: 700 MG
     Route: 042
     Dates: start: 20200521, end: 20200521
  9. METHOTREXATE SODIUM. [Suspect]
     Active Substance: METHOTREXATE SODIUM
     Dosage: 55 MG, CYCLIC (ONCE EVERY 2 WEEKS)
     Route: 042
     Dates: start: 20200520, end: 20200520
  10. DOXORUBICIN HCL [Suspect]
     Active Substance: DOXORUBICIN HYDROCHLORIDE
     Indication: BLADDER TRANSITIONAL CELL CARCINOMA
     Dosage: UNK UNK, CYCLIC (ONCE EVERY 2 WEEKS)
     Route: 042
     Dates: start: 20200409

REACTIONS (1)
  - Acute kidney injury [Recovered/Resolved]

NARRATIVE: CASE EVENT DATE: 20200727
